FAERS Safety Report 6758509-1 (Version None)
Quarter: 2010Q2

REPORT INFORMATION
  Report Type: 
  Country: None (occurrence: None)
  Receive Date: 20100607
  Receipt Date: 20100527
  Transmission Date: 20101027
  Serious: Yes (Hospitalization)
  Sender: FDA-Public Use
  Company Number: B0633887A

PATIENT
  Sex: Female

DRUGS (3)
  1. ACYCLOVIR [Suspect]
     Dates: start: 20100120
  2. REMICADE [Suspect]
     Indication: CROHN'S DISEASE
     Route: 042
     Dates: start: 20071101
  3. REMICADE [Suspect]
     Route: 042
     Dates: start: 20091217

REACTIONS (3)
  - BLOOD ALBUMIN DECREASED [None]
  - HEPATIC ENZYME INCREASED [None]
  - HERPES ZOSTER [None]
